FAERS Safety Report 14996878 (Version 1)
Quarter: 2018Q2

REPORT INFORMATION
  Report Type: Spontaneous
  Country: US (occurrence: US)
  Receive Date: 20180522
  Receipt Date: 20180522
  Transmission Date: 20180711
  Serious: Yes (Hospitalization)
  Sender: FDA-Public Use
  Company Number: None

PATIENT
  Age: 51 Year
  Sex: Female
  Weight: 110.7 kg

DRUGS (8)
  1. ONDANSETRON 4MG/2ML [Concomitant]
     Dates: start: 20180502, end: 20180502
  2. NACL 0.9% 10ML FLUSH SYRINGE [Concomitant]
     Dates: start: 20180502, end: 20180502
  3. NACL 0.9% 1L BAG [Concomitant]
     Dates: start: 20180502, end: 20180502
  4. GAMUNEX-C [Suspect]
     Active Substance: HUMAN IMMUNOGLOBULIN G
     Indication: IMMUNODEFICIENCY COMMON VARIABLE
     Dosage: ?          OTHER FREQUENCY:Q2WEEKS;?
     Route: 042
     Dates: start: 20180502, end: 20180502
  5. ACETAMINOPHEN 500MG [Concomitant]
     Active Substance: ACETAMINOPHEN
     Dates: start: 20180502, end: 20180502
  6. HEPARIN 100U/5ML FLUSH SYRINGE [Concomitant]
     Dates: start: 20180502, end: 20180502
  7. DIPHENHYDRAMINE 50MG/ML [Concomitant]
     Active Substance: DIPHENHYDRAMINE
     Dates: start: 20180502, end: 20180502
  8. HYDROXYZINE 25MG [Concomitant]
     Dates: start: 20180502, end: 20180502

REACTIONS (1)
  - Feeling abnormal [None]

NARRATIVE: CASE EVENT DATE: 20180503
